FAERS Safety Report 4391781-4 (Version None)
Quarter: 2004Q3

REPORT INFORMATION
  Report Type: 
  Country: None (occurrence: None)
  Receive Date: 20040701
  Receipt Date: 20010405
  Transmission Date: 20050211
  Serious: Yes (Hospitalization, Other)
  Sender: FDA-Public Use
  Company Number: KII-2001-0011591

PATIENT
  Sex: Male

DRUGS (2)
  1. OXYCONTIN [Suspect]
     Dosage: ORAL
     Route: 048
  2. VICODIN [Suspect]
     Dosage: ORAL
     Route: 048

REACTIONS (2)
  - COMA [None]
  - POLYSUBSTANCE ABUSE [None]
